FAERS Safety Report 5992012-1 (Version None)
Quarter: 2008Q4

REPORT INFORMATION
  Report Type: 
  Country: None (occurrence: None)
  Receive Date: 20081211
  Receipt Date: 20081204
  Transmission Date: 20090506
  Serious: Yes (Other)
  Sender: FDA-Public Use
  Company Number: ES-ROXANE LABORATORIES, INC.-2008-RO-00347RO

PATIENT
  Age: 73 Year
  Sex: Female

DRUGS (12)
  1. CYCLOPHOSPHAMIDE [Suspect]
     Indication: ANTI-NEUTROPHIL CYTOPLASMIC ANTIBODY POSITIVE VASCULITIS
     Route: 048
  2. CYCLOPHOSPHAMIDE [Suspect]
     Indication: PULMONARY RENAL SYNDROME
  3. CYCLOPHOSPHAMIDE [Suspect]
     Indication: GLOMERULONEPHRITIS PROLIFERATIVE
  4. PREDNISONE TAB [Suspect]
     Indication: ANTI-NEUTROPHIL CYTOPLASMIC ANTIBODY POSITIVE VASCULITIS
  5. PREDNISONE TAB [Suspect]
     Indication: PULMONARY RENAL SYNDROME
     Route: 048
  6. PREDNISONE TAB [Suspect]
     Indication: GLOMERULONEPHRITIS PROLIFERATIVE
  7. AZATHIOPRINE [Suspect]
     Indication: ANTI-NEUTROPHIL CYTOPLASMIC ANTIBODY POSITIVE VASCULITIS
  8. AZATHIOPRINE [Suspect]
     Indication: PULMONARY RENAL SYNDROME
  9. AZATHIOPRINE [Suspect]
     Indication: GLOMERULONEPHRITIS PROLIFERATIVE
  10. METHYLPREDNISOLONE [Suspect]
     Indication: ANTI-NEUTROPHIL CYTOPLASMIC ANTIBODY POSITIVE VASCULITIS
     Route: 042
  11. METHYLPREDNISOLONE [Suspect]
     Indication: PULMONARY RENAL SYNDROME
     Route: 042
  12. METHYLPREDNISOLONE [Suspect]
     Indication: GLOMERULONEPHRITIS PROLIFERATIVE

REACTIONS (2)
  - ANTI-NEUTROPHIL CYTOPLASMIC ANTIBODY POSITIVE VASCULITIS [None]
  - LEUKOPENIA [None]
